FAERS Safety Report 9172434 (Version 1)
Quarter: 2013Q1

REPORT INFORMATION
  Report Type: Spontaneous
  Country: US (occurrence: US)
  Receive Date: 20130319
  Receipt Date: 20130319
  Transmission Date: 20140127
  Serious: No
  Sender: FDA-Public Use
  Company Number: US-ASTRAZENECA-2013SE09958

PATIENT
  Age: 37 Year
  Sex: Female
  Weight: 50.8 kg

DRUGS (1)
  1. ZOLADEX [Suspect]
     Indication: OVARIAN CANCER
     Route: 058
     Dates: start: 20130206

REACTIONS (2)
  - Abdominal pain [Unknown]
  - Injection site pain [Unknown]
